FAERS Safety Report 8010082 (Version 3)
Quarter: 2013Q3

REPORT INFORMATION
  Report Type: Report from Study
  Country: CA (occurrence: CA)
  Receive Date: 20110627
  Receipt Date: 20130709
  Transmission Date: 20140515
  Serious: Yes (Hospitalization, Other)
  Sender: FDA-Public Use
  Company Number: PHHY2011CA52766

PATIENT
  Age: 77 Year
  Sex: Female

DRUGS (6)
  1. ACLASTA [Suspect]
     Indication: OSTEOPOROSIS
     Dosage: 5 MG / YEAR
     Route: 042
     Dates: start: 201006
  2. ACLASTA [Suspect]
     Dosage: 5 MG / YEAR
     Route: 042
     Dates: start: 20110602
  3. CALCIUM CHANNEL BLOCKERS [Concomitant]
  4. VITAMIN D [Concomitant]
  5. CALCIUM [Concomitant]
  6. CRESTOR [Concomitant]

REACTIONS (24)
  - Paralysis [Unknown]
  - Loss of consciousness [Unknown]
  - Fear of death [Unknown]
  - Mobility decreased [Unknown]
  - Respiratory failure [Unknown]
  - Migraine [Unknown]
  - Confusional state [Unknown]
  - Renal failure acute [Recovered/Resolved]
  - Renal failure [Unknown]
  - Dysstasia [Unknown]
  - Eye pain [Unknown]
  - Local swelling [Unknown]
  - Arthritis [Unknown]
  - Arthralgia [Unknown]
  - Groin pain [Unknown]
  - Back pain [Unknown]
  - Chronic fatigue syndrome [Unknown]
  - Tremor [Unknown]
  - Fatigue [Unknown]
  - Asthenia [Unknown]
  - Hypotension [Unknown]
  - Abasia [Unknown]
  - Emotional distress [Unknown]
  - Pain [Unknown]
